FAERS Safety Report 7378854-9 (Version None)
Quarter: 2011Q1

REPORT INFORMATION
  Report Type: 
  Country: None (occurrence: None)
  Receive Date: 20110328
  Receipt Date: 20110315
  Transmission Date: 20110831
  Serious: Yes (Other)
  Sender: FDA-Public Use
  Company Number: PHHY2011BR21729

PATIENT
  Sex: Female

DRUGS (2)
  1. EXELON [Suspect]
     Dosage: 18MG/10CM2
     Route: 062
  2. EXELON [Suspect]
     Dosage: 9MG/5CM2
     Route: 062

REACTIONS (8)
  - MEMORY IMPAIRMENT [None]
  - REGRESSIVE BEHAVIOUR [None]
  - AGGRESSION [None]
  - DEHYDRATION [None]
  - HYPOPHAGIA [None]
  - FEMUR FRACTURE [None]
  - SPEECH DISORDER [None]
  - HYPERSOMNIA [None]
